FAERS Safety Report 9299016 (Version 1)
Quarter: 2013Q2

REPORT INFORMATION
  Report Type: Spontaneous
  Country: DE (occurrence: DE)
  Receive Date: 20130520
  Receipt Date: 20130520
  Transmission Date: 20140414
  Serious: Yes (Other)
  Sender: FDA-Public Use
  Company Number: DE-MERCK-2011SP038136

PATIENT
  Age: 39 Year
  Sex: Male

DRUGS (2)
  1. SYCREST [Suspect]
     Indication: BIPOLAR DISORDER
     Dosage: 20 MG, QD
     Dates: start: 201110, end: 201110
  2. SYCREST [Suspect]
     Dosage: 10 MG, UNK
     Dates: start: 2011

REACTIONS (10)
  - Disorientation [Recovered/Resolved]
  - Activities of daily living impaired [Recovered/Resolved]
  - Impaired work ability [Recovered/Resolved]
  - Burning sensation [Recovered/Resolved]
  - Fatigue [Recovered/Resolved]
  - Dysarthria [Recovered/Resolved]
  - Gait disturbance [Recovered/Resolved]
  - Hypersomnia [Recovered/Resolved]
  - Headache [Recovered/Resolved]
  - Fatigue [Unknown]
